FAERS Safety Report 19569336 (Version 2)
Quarter: 2021Q3

REPORT INFORMATION
  Report Type: Spontaneous
  Country: JP (occurrence: JP)
  Receive Date: 20210716
  Receipt Date: 20210902
  Transmission Date: 20211014
  Serious: Yes (Hospitalization)
  Sender: FDA-Public Use
  Company Number: JP-ELI_LILLY_AND_COMPANY-JP202105012658

PATIENT
  Age: 50 Year
  Sex: Female

DRUGS (5)
  1. FASLODEX [Concomitant]
     Active Substance: FULVESTRANT
     Dosage: 500 MG, CYCLICAL
     Route: 030
     Dates: start: 20201113, end: 20210319
  2. TOARASET [Concomitant]
     Active Substance: ACETAMINOPHEN\TRAMADOL HYDROCHLORIDE
     Dosage: 4 DOSAGE FORM
     Route: 048
     Dates: start: 20181116
  3. RANMARK [Concomitant]
     Active Substance: DENOSUMAB
     Dosage: 120 MG
     Route: 058
     Dates: start: 20181116
  4. VERZENIO [Suspect]
     Active Substance: ABEMACICLIB
     Indication: BREAST CANCER
     Dosage: 150 MG, BID
     Route: 048
     Dates: start: 20201113, end: 20210115
  5. LEUPLIN [Concomitant]
     Active Substance: LEUPROLIDE ACETATE
     Dosage: 11.25 MG
     Route: 058
     Dates: end: 20210319

REACTIONS (2)
  - Influenza like illness [Recovered/Resolved]
  - Neutrophil count decreased [Recovered/Resolved]

NARRATIVE: CASE EVENT DATE: 20201127
